FAERS Safety Report 7084492-8 (Version None)
Quarter: 2010Q4

REPORT INFORMATION
  Report Type: 
  Country: None (occurrence: None)
  Receive Date: 20101104
  Receipt Date: 20101101
  Transmission Date: 20110411
  Serious: Yes (Other)
  Sender: FDA-Public Use
  Company Number: JP-PFIZER INC-2010138890

PATIENT
  Age: 35 Year
  Sex: Female

DRUGS (2)
  1. SALAZOPYRIN [Suspect]
     Indication: COLITIS ULCERATIVE
     Dosage: 2000 MG DAILY
     Route: 048
  2. SALAZOPYRIN [Suspect]
     Indication: HAEMORRHAGE

REACTIONS (3)
  - HAEMORRHAGE [None]
  - HEADACHE [None]
  - MALAISE [None]
